FAERS Safety Report 22102484 (Version 1)
Quarter: 2023Q1

REPORT INFORMATION
  Report Type: Spontaneous
  Country: BR (occurrence: BR)
  Receive Date: 20230316
  Receipt Date: 20230316
  Transmission Date: 20230418
  Serious: Yes (Other)
  Sender: FDA-Public Use
  Company Number: BR-AMGEN-BRASP2023020758

PATIENT
  Age: 39 Year

DRUGS (7)
  1. PACLITAXEL [Suspect]
     Active Substance: PACLITAXEL
     Indication: Metastases to bone
     Dosage: UNK
     Route: 065
     Dates: start: 202104
  2. DOXORUBICIN HYDROCHLORIDE [Suspect]
     Active Substance: DOXORUBICIN HYDROCHLORIDE
     Indication: Metastases to bone
     Dosage: UNK
     Route: 065
     Dates: start: 202111
  3. DENOSUMAB [Suspect]
     Active Substance: DENOSUMAB
     Indication: Metastases to bone
     Dosage: 120 MG/MONTH
     Route: 065
     Dates: start: 201907
  4. FULVESTRANT [Suspect]
     Active Substance: FULVESTRANT
     Indication: Product used for unknown indication
     Dosage: UNK
     Route: 065
  5. RIBOCICLIB [Suspect]
     Active Substance: RIBOCICLIB
     Indication: Product used for unknown indication
     Dosage: UNK
     Route: 065
  6. CAPECITABINE [Suspect]
     Active Substance: CAPECITABINE
     Indication: Metastases to bone
     Route: 065
  7. GOSERELIN [Concomitant]
     Active Substance: GOSERELIN
     Indication: Breast cancer
     Dosage: UNK

REACTIONS (1)
  - Breast cancer metastatic [Unknown]
